FAERS Safety Report 13415449 (Version 3)
Quarter: 2017Q3

REPORT INFORMATION
  Report Type: Spontaneous
  Country: JP (occurrence: JP)
  Receive Date: 20170406
  Receipt Date: 20170727
  Transmission Date: 20171127
  Serious: Yes (Hospitalization)
  Sender: FDA-Public Use
  Company Number: JP-DSJP-DSJ-2017-109845

PATIENT
  Age: 84 Year
  Sex: Male

DRUGS (6)
  1. OPALMON [Concomitant]
     Active Substance: LIMAPROST
     Dosage: 5 ?G, BID
     Route: 048
     Dates: start: 20151010
  2. CYMBALTA [Concomitant]
     Active Substance: DULOXETINE HYDROCHLORIDE
     Dosage: 60 MG, QD
     Route: 048
     Dates: start: 20161218
  3. LIXIANA TABLETS [Suspect]
     Active Substance: EDOXABAN TOSYLATE
     Indication: ATRIAL FIBRILLATION
     Dosage: 60 MG, QD
     Route: 048
     Dates: start: 20161018
  4. PURSENNID                          /00571902/ [Concomitant]
     Active Substance: SENNOSIDES A AND B
     Dosage: 36 MG, QD
     Route: 048
     Dates: start: 20140512
  5. IRRIBOW [Concomitant]
     Active Substance: RAMOSETRON HYDROCHLORIDE
     Dosage: 2.5 ?G, QD
     Route: 048
     Dates: start: 20151022
  6. RENIVACE [Concomitant]
     Active Substance: ENALAPRIL
     Indication: HYPERTENSION
     Dosage: 2.5 MG, QD
     Route: 048
     Dates: start: 20140801

REACTIONS (1)
  - Thalamus haemorrhage [Recovered/Resolved with Sequelae]

NARRATIVE: CASE EVENT DATE: 20170324
